FAERS Safety Report 7625878-X (Version None)
Quarter: 2011Q3

REPORT INFORMATION
  Report Type: 
  Country: None (occurrence: None)
  Receive Date: 20110721
  Receipt Date: 20110715
  Transmission Date: 20111222
  Serious: Yes (Life-Threatening, Hospitalization, Other)
  Sender: FDA-Public Use
  Company Number: GB-CELGENEUS-167-21880-08121096

PATIENT
  Sex: Female

DRUGS (3)
  1. REVLIMID [Suspect]
     Dosage: 10 MILLIGRAM
     Route: 048
     Dates: start: 20081203, end: 20081216
  2. DESFERRIOXAMINE [Concomitant]
     Dosage: 2 GRAM
     Route: 058
  3. TYROXINE [Concomitant]
     Dosage: 50 MICROGRAM
     Route: 065

REACTIONS (2)
  - MYOPERICARDITIS [None]
  - MYOCARDIAL INFARCTION [None]
